FAERS Safety Report 11647106 (Version 2)
Quarter: 2015Q4

REPORT INFORMATION
  Report Type: Spontaneous
  Country: US (occurrence: US)
  Receive Date: 20151021
  Receipt Date: 20151021
  Transmission Date: 20160304
  Serious: No
  Sender: FDA-Public Use
  Company Number: US-LUPIN PHARMACEUTICALS INC.-E2B_00003962

PATIENT
  Sex: Female
  Weight: 72.64 kg

DRUGS (3)
  1. CALTRATE D PLUS MINERALS [Suspect]
     Active Substance: CALCIUM\CHOLECALCIFEROL\COPPER\MAGNESIUM\MANGANESE\ZINC
     Indication: BONE DISORDER
     Route: 065
     Dates: start: 20150705
  2. LISINOPRIL TABLETS USP 40MG [Suspect]
     Active Substance: LISINOPRIL
     Indication: HYPERTENSION
  3. VENTOLIN [Concomitant]
     Active Substance: ALBUTEROL SULFATE
     Indication: ASTHMA
     Dosage: 8 PUFF (2 PUFF EVERY 6 HOURS)

REACTIONS (1)
  - Dry mouth [Not Recovered/Not Resolved]
